FAERS Safety Report 7211132-7 (Version None)
Quarter: 2011Q1

REPORT INFORMATION
  Report Type: 
  Country: None (occurrence: None)
  Receive Date: 20110105
  Receipt Date: 20101222
  Transmission Date: 20110831
  Serious: Yes (Other)
  Sender: FDA-Public Use
  Company Number: PHHY2010GB87181

PATIENT
  Age: 64 Year
  Sex: Female

DRUGS (2)
  1. ETANERCEPT [Suspect]
     Indication: PSORIATIC ARTHROPATHY
     Dosage: 50MG PER WEEK
     Route: 030
  2. ALENDRONATE [Suspect]
     Indication: OSTEOPOROSIS
     Dosage: 70 MG
     Route: 048
     Dates: start: 20100620, end: 20100721

REACTIONS (1)
  - DIARRHOEA HAEMORRHAGIC [None]
